FAERS Safety Report 23508693 (Version 1)
Quarter: 2024Q1

REPORT INFORMATION
  Report Type: Spontaneous
  Country: PL (occurrence: PL)
  Receive Date: 20240209
  Receipt Date: 20240209
  Transmission Date: 20240410
  Serious: Yes (Hospitalization)
  Sender: FDA-Public Use
  Company Number: PL-Orion Corporation ORION PHARMA-SERT2023-0016

PATIENT
  Age: 29 Year
  Sex: Male

DRUGS (8)
  1. BUPROPION HYDROCHLORIDE\NALTREXONE HYDROCHLORIDE [Interacting]
     Active Substance: BUPROPION HYDROCHLORIDE\NALTREXONE HYDROCHLORIDE
     Indication: Obesity
     Dosage: 90MG/8MG; 1 TABLET 2 TIMES A DAY FOR 2 WEEKS
     Route: 065
  2. BUPROPION HYDROCHLORIDE\NALTREXONE HYDROCHLORIDE [Interacting]
     Active Substance: BUPROPION HYDROCHLORIDE\NALTREXONE HYDROCHLORIDE
     Dosage: 2.000DF BID
     Route: 065
  3. OMEPRAZOLE [Interacting]
     Active Substance: OMEPRAZOLE
     Indication: Oesophageal pain
     Dosage: 40.000MG QD
     Route: 065
  4. OMEPRAZOLE [Interacting]
     Active Substance: OMEPRAZOLE
     Indication: Eructation
  5. ACETAMINOPHEN [Interacting]
     Active Substance: ACETAMINOPHEN
     Indication: Headache
     Dosage: 4 X 1000 MG
     Route: 048
  6. SEMAGLUTIDE [Interacting]
     Active Substance: SEMAGLUTIDE
     Indication: Obesity
     Dosage: FIRST 2 WEEKS
     Route: 058
  7. SEMAGLUTIDE [Interacting]
     Active Substance: SEMAGLUTIDE
     Dosage: 1.000MG
     Route: 058
  8. SERTRALINE [Interacting]
     Active Substance: SERTRALINE HYDROCHLORIDE
     Indication: Depression
     Dosage: 100.000MG QD
     Route: 065

REACTIONS (7)
  - Pancreatitis [Recovered/Resolved]
  - Contraindicated product administered [Unknown]
  - Drug interaction [Unknown]
  - Product administration error [Unknown]
  - Eructation [Recovered/Resolved]
  - Headache [Recovered/Resolved]
  - Oesophageal pain [Recovered/Resolved]
